FAERS Safety Report 11157865 (Version 1)
Quarter: 2015Q2

REPORT INFORMATION
  Report Type: Spontaneous
  Country: JP (occurrence: None)
  Receive Date: 20150601
  Receipt Date: 20150601
  Transmission Date: 20150821
  Serious: Yes (Hospitalization)
  Sender: FDA-Public Use
  Company Number: SP09528

PATIENT
  Age: 8 Decade
  Sex: Male

DRUGS (2)
  1. MOVIPREP [Suspect]
     Active Substance: ASCORBIC ACID\POLYETHYLENE GLYCOL 3350\POTASSIUM CHLORIDE\SODIUM ASCORBATE\SODIUM CHLORIDE\SODIUM SULFATE
     Indication: ENDOSCOPY LARGE BOWEL
     Dosage: (800 ML), ORAL
     Route: 048
     Dates: start: 20150513, end: 20150513
  2. LAXOBERON [Concomitant]
     Active Substance: SODIUM PICOSULFATE

REACTIONS (3)
  - Faeces soft [None]
  - Nausea [None]
  - Cold sweat [None]

NARRATIVE: CASE EVENT DATE: 20150513
